FAERS Safety Report 4970866-5 (Version None)
Quarter: 2006Q2

REPORT INFORMATION
  Report Type: 
  Country: None (occurrence: None)
  Receive Date: 20060406
  Receipt Date: 20060327
  Transmission Date: 20061013
  Serious: Yes (Hospitalization)
  Sender: FDA-Public Use
  Company Number: 2006030054

PATIENT
  Age: 73 Year
  Sex: Female

DRUGS (4)
  1. DORAL [Suspect]
     Indication: INSOMNIA
     Dosage: 15 M G (1 IN 1 D), ORAL
     Route: 048
  2. PAXIL [Suspect]
     Indication: ILL-DEFINED DISORDER
     Dates: end: 20060130
  3. LUVOX [Concomitant]
  4. LENDORMN (BROTIZOLAM) [Concomitant]

REACTIONS (3)
  - DELIRIUM [None]
  - DEPRESSED LEVEL OF CONSCIOUSNESS [None]
  - DRUG LEVEL INCREASED [None]
